FAERS Safety Report 12512709 (Version 2)
Quarter: 2016Q3

REPORT INFORMATION
  Report Type: Spontaneous
  Country: KE (occurrence: KE)
  Receive Date: 20160630
  Receipt Date: 20160713
  Transmission Date: 20161109
  Serious: Yes (Death, Hospitalization)
  Sender: FDA-Public Use
  Company Number: KE-ALVOGEN-2016-ALVOGEN-025431

PATIENT
  Sex: Female
  Weight: 61 kg

DRUGS (3)
  1. ACTRAPID INSULIN NOVO [Concomitant]
     Indication: HYPERGLYCAEMIA
     Dosage: 10 IM PM
     Route: 058
  2. ZESTORETIC [Suspect]
     Active Substance: HYDROCHLOROTHIAZIDE\LISINOPRIL
     Indication: HYPERTENSION
     Dosage: 20/12.5MG DAILY
     Route: 048
     Dates: start: 201601
  3. METFORMIN [Concomitant]
     Active Substance: METFORMIN HYDROCHLORIDE
     Indication: PRODUCT USED FOR UNKNOWN INDICATION
     Route: 048
     Dates: start: 201512

REACTIONS (1)
  - Renal failure [Fatal]
